FAERS Safety Report 21950043 (Version 1)
Quarter: 2023Q1

REPORT INFORMATION
  Report Type: Spontaneous
  Country: US (occurrence: US)
  Receive Date: 20230203
  Receipt Date: 20230203
  Transmission Date: 20230418
  Serious: Yes (Life-Threatening, Other)
  Sender: FDA-Public Use
  Company Number: US-AMGEN-USASP2023014338

PATIENT
  Age: 83 Year
  Sex: Male

DRUGS (4)
  1. RITUXIMAB [Suspect]
     Active Substance: RITUXIMAB
     Indication: Acquired haemophilia
     Dosage: 375 MILLIGRAM/SQ. METER, QWK
     Route: 065
  2. FILGRASTIM [Suspect]
     Active Substance: FILGRASTIM
     Indication: Neutropenia
     Dosage: UNK
     Route: 065
  3. PREDNISONE [Concomitant]
     Active Substance: PREDNISONE
     Indication: Product used for unknown indication
     Dosage: 70 MILLIGRAM, QD
     Route: 065
  4. CYCLOPHOSPHAMIDE [Concomitant]
     Active Substance: CYCLOPHOSPHAMIDE
     Indication: Product used for unknown indication
     Dosage: 75 MILLIGRAM, QD
     Route: 065

REACTIONS (17)
  - Haemodynamic instability [Unknown]
  - Sepsis [Unknown]
  - Pseudomonas test positive [Unknown]
  - Klebsiella test positive [Unknown]
  - Haemorrhage [Recovering/Resolving]
  - Pneumonia aspiration [Unknown]
  - Chronic lymphocytic leukaemia [Unknown]
  - Atrial fibrillation [Unknown]
  - Drug effective for unapproved indication [Unknown]
  - Haematoma [Recovered/Resolved]
  - Haemorrhoidal haemorrhage [Unknown]
  - Ecchymosis [Recovered/Resolved]
  - Off label use [Unknown]
  - Mental status changes [Unknown]
  - Pain in extremity [Unknown]
  - Orthostatic hypotension [Unknown]
  - Haemoglobin decreased [Recovered/Resolved]
